FAERS Safety Report 13233154 (Version 5)
Quarter: 2018Q1

REPORT INFORMATION
  Report Type: Report from Study
  Country: FR (occurrence: FR)
  Receive Date: 20170215
  Receipt Date: 20180115
  Transmission Date: 20180508
  Serious: Yes (Death)
  Sender: FDA-Public Use
  Company Number: FR-ROCHE-1893632

PATIENT
  Age: 61 Year
  Sex: Female
  Weight: 100 kg

DRUGS (26)
  1. ALPRAZOLAM. [Concomitant]
     Active Substance: ALPRAZOLAM
     Indication: ANXIETY
  2. MIDAZOLAM [Concomitant]
     Active Substance: MIDAZOLAM HYDROCHLORIDE
     Dosage: ANESTHESIC
     Route: 065
     Dates: start: 20170213
  3. DIOSMECTITE [Concomitant]
     Active Substance: MONTMORILLONITE
     Dosage: ANTIDIARRHEAL
     Route: 065
     Dates: start: 20170212, end: 20170212
  4. KETAMINE [Concomitant]
     Active Substance: KETAMINE
     Dosage: ANESTHESIC
     Route: 065
     Dates: start: 20170213
  5. ATENOLOL. [Concomitant]
     Active Substance: ATENOLOL
     Dosage: ANTIARYTHMIC
     Route: 065
     Dates: start: 20170213
  6. ESOMEPRAZOLE [Concomitant]
     Active Substance: ESOMEPRAZOLE
     Indication: GASTROOESOPHAGEAL REFLUX DISEASE
  7. PARACETAMOL [Concomitant]
     Active Substance: ACETAMINOPHEN
     Indication: PAIN
     Route: 065
     Dates: start: 20170212, end: 20170212
  8. IPRATROPIUM [Concomitant]
     Active Substance: IPRATROPIUM
     Dosage: ANTIASTHMATIC
     Route: 065
     Dates: start: 20170212, end: 20170212
  9. ATEZOLIZUMAB. [Suspect]
     Active Substance: ATEZOLIZUMAB
     Indication: NON-SMALL CELL LUNG CANCER STAGE IV
     Dosage: THE MOST RECENT DOSE OF ATEZOLIZUMAB PRIOR TO THE ONSET OF THE EVENT WAS ON 30/JAN/2017.
     Route: 042
     Dates: start: 20170130
  10. CISPLATIN. [Suspect]
     Active Substance: CISPLATIN
     Indication: NON-SMALL CELL LUNG CANCER STAGE IV
     Dosage: THE MOST RECENT DOSE OF CISPLATIN PRIOR TO THE ONSET OF THE EVENT WAS 140 MG ON 30/JAN/2017.
     Route: 042
     Dates: start: 20170130
  11. HYDROCHLOROTHIAZIDE/LOSARTAN [Concomitant]
     Active Substance: HYDROCHLOROTHIAZIDE\LOSARTAN
     Indication: HYPERTENSION
  12. SPIRAMYCINE [Concomitant]
     Active Substance: SPIRAMYCIN
     Dosage: ANTIBIOTIC
     Route: 065
     Dates: start: 20170212
  13. LANSOPRAZOLE. [Concomitant]
     Active Substance: LANSOPRAZOLE
     Indication: GASTROOESOPHAGEAL REFLUX DISEASE
     Route: 065
     Dates: start: 20170212, end: 20170212
  14. FOLIC ACID. [Concomitant]
     Active Substance: FOLIC ACID
     Route: 065
     Dates: start: 20170118, end: 20170213
  15. PHYTOMENADIONE [Concomitant]
     Active Substance: PHYTONADIONE
     Dosage: ANTIHEMORRAGIC
     Route: 065
     Dates: start: 20170212, end: 20170212
  16. LINEZOLIDE [Concomitant]
     Active Substance: LINEZOLID
     Indication: PNEUMONIA
     Route: 065
     Dates: start: 20170213
  17. PEMETREXED. [Suspect]
     Active Substance: PEMETREXED
     Indication: NON-SMALL CELL LUNG CANCER STAGE IV
     Dosage: THE MOST RECENT DOSE OF PEMETREXED PRIOR TO THE ONSET OF THE EVENT WAS 985 MG ON 30/JAN/2017.
     Route: 042
     Dates: start: 20170130
  18. FUROSEMIDE. [Concomitant]
     Active Substance: FUROSEMIDE
     Dosage: ANTIHYPERTENSIVE
     Route: 065
     Dates: start: 20170213
  19. AMIKACINE [Concomitant]
     Active Substance: AMIKACIN
     Dosage: ANTIBIOTICS
     Route: 065
     Dates: start: 20170213
  20. RACECADOTRIL [Concomitant]
     Active Substance: RACECADOTRIL
     Dosage: ANTIDIARRHEAL
     Route: 065
     Dates: start: 20170212, end: 20170212
  21. CISATRACURIUM. [Concomitant]
     Active Substance: CISATRACURIUM
     Dosage: ANESTHESIC
     Route: 065
     Dates: start: 20170213
  22. TERBUTALINE [Concomitant]
     Active Substance: TERBUTALINE
     Dosage: ANTI-ASTHMATIC
     Route: 065
     Dates: start: 20170212, end: 20170212
  23. GANCICLOVIR. [Concomitant]
     Active Substance: GANCICLOVIR
     Dosage: ANTIVIRAL
     Route: 065
     Dates: start: 20170213
  24. HYDROCORTISONE. [Concomitant]
     Active Substance: HYDROCORTISONE
     Dosage: ANTI-INFLAMMATORY
     Route: 065
     Dates: start: 20170213
  25. SUFENTANIL [Concomitant]
     Active Substance: SUFENTANIL
     Dosage: ANESTHESIC
     Route: 065
     Dates: start: 20170213
  26. VITAMIN B12 [Concomitant]
     Active Substance: CYANOCOBALAMIN
     Route: 065
     Dates: start: 20170118, end: 20170213

REACTIONS (1)
  - Influenza [Fatal]

NARRATIVE: CASE EVENT DATE: 20170211
